FAERS Safety Report 16952875 (Version 1)
Quarter: 2019Q4

REPORT INFORMATION
  Report Type: Report from Study
  Country: US (occurrence: US)
  Receive Date: 20191023
  Receipt Date: 20191023
  Transmission Date: 20200122
  Serious: Yes (Hospitalization, Other)
  Sender: FDA-Public Use
  Company Number: US-JNJFOC-20190425670

PATIENT
  Age: 59 Year
  Sex: Female

DRUGS (3)
  1. IMBRUVICA [Suspect]
     Active Substance: IBRUTINIB
     Dosage: 140 MG, QD
     Route: 048
     Dates: start: 201403
  2. IMBRUVICA [Suspect]
     Active Substance: IBRUTINIB
     Indication: CHRONIC LYMPHOCYTIC LEUKAEMIA
     Route: 048
     Dates: start: 20190406
  3. IMBRUVICA [Suspect]
     Active Substance: IBRUTINIB
     Indication: CHRONIC LYMPHOCYTIC LEUKAEMIA
     Route: 048
     Dates: start: 20180319

REACTIONS (10)
  - Arthralgia [Not Recovered/Not Resolved]
  - Sepsis [Unknown]
  - Contusion [Not Recovered/Not Resolved]
  - Palpitations [Not Recovered/Not Resolved]
  - Pain [Unknown]
  - Stomatitis [Unknown]
  - Incorrect dose administered [Unknown]
  - Gastrointestinal motility disorder [Not Recovered/Not Resolved]
  - Pneumonia [Unknown]
  - Fatigue [Unknown]

NARRATIVE: CASE EVENT DATE: 201403
